FAERS Safety Report 8239652-7 (Version None)
Quarter: 2012Q1

REPORT INFORMATION
  Report Type: 
  Country: None (occurrence: None)
  Receive Date: 20120327
  Receipt Date: 20120327
  Transmission Date: 20120608
  Serious: No
  Sender: FDA-Public Use
  Company Number: None

PATIENT
  Age: 42 Year
  Sex: Male

DRUGS (2)
  1. HYDRALAZINE HCL [Suspect]
     Dates: start: 20100922, end: 20101201
  2. DOXAZOSIN MESYLATE [Suspect]
     Dates: start: 20101213, end: 20101220

REACTIONS (16)
  - PLASMA CELLS PRESENT [None]
  - RENAL FAILURE [None]
  - ASCITES [None]
  - HEADACHE [None]
  - AUTOIMMUNE DISORDER [None]
  - INFLUENZA [None]
  - INTERNATIONAL NORMALISED RATIO INCREASED [None]
  - LIVER DISORDER [None]
  - HEPATIC NECROSIS [None]
  - LYMPHOCYTIC INFILTRATION [None]
  - LIVER TRANSPLANT [None]
  - LIVER INJURY [None]
  - JAUNDICE [None]
  - OEDEMA [None]
  - FATIGUE [None]
  - ANTINUCLEAR ANTIBODY POSITIVE [None]
